FAERS Safety Report 6241189-1 (Version None)
Quarter: 2009Q2

REPORT INFORMATION
  Report Type: 
  Country: None (occurrence: None)
  Receive Date: 20090617
  Receipt Date: 20071019
  Transmission Date: 20091009
  Serious: No
  Sender: FDA-Public Use
  Company Number: 268755

PATIENT
  Age: 48 Year
  Sex: Male

DRUGS (1)
  1. LEVEMIR [Suspect]
     Indication: INSULIN-REQUIRING TYPE 2 DIABETES MELLITUS
     Dosage: SUBCUTANEOUS
     Route: 058
     Dates: start: 20070401, end: 20070401

REACTIONS (1)
  - INJECTION SITE ERYTHEMA [None]
